FAERS Safety Report 6612055-4 (Version None)
Quarter: 2010Q1

REPORT INFORMATION
  Report Type: 
  Country: None (occurrence: None)
  Receive Date: 20100303
  Receipt Date: 20100222
  Transmission Date: 20100710
  Serious: Yes (Hospitalization)
  Sender: FDA-Public Use
  Company Number: B0631022A

PATIENT
  Age: 52 Year
  Sex: Female

DRUGS (1)
  1. SERETIDE [Suspect]
     Indication: ASTHMA
     Dosage: 500MG TWICE PER DAY
     Route: 055

REACTIONS (1)
  - GASTROINTESTINAL CANDIDIASIS [None]
